FAERS Safety Report 15941377 (Version 3)
Quarter: 2019Q3

REPORT INFORMATION
  Report Type: Spontaneous
  Country: US (occurrence: US)
  Receive Date: 20190208
  Receipt Date: 20190821
  Transmission Date: 20191004
  Serious: Yes (Other)
  Sender: FDA-Public Use
  Company Number: US-ASTRAZENECA-2019SE09554

PATIENT
  Sex: Female

DRUGS (55)
  1. MIRTAZAPINE. [Concomitant]
     Active Substance: MIRTAZAPINE
  2. AZITHROMYCIN ANHYDROUS. [Concomitant]
     Active Substance: AZITHROMYCIN ANHYDROUS
  3. DONNATAL [Concomitant]
     Active Substance: ATROPINE SULFATE\HYOSCYAMINE SULFATE\PHENOBARBITAL\SCOPOLAMINE HYDROBROMIDE
  4. VENTOLIN HFA [Concomitant]
     Active Substance: ALBUTEROL SULFATE
  5. METFORMIN [Concomitant]
     Active Substance: METFORMIN HYDROCHLORIDE
  6. DEXILANT [Suspect]
     Active Substance: DEXLANSOPRAZOLE
     Dosage: FOR MULTIPLE AND VARIOUS YEARS
     Route: 065
  7. PREVACID 24 HR [Suspect]
     Active Substance: LANSOPRAZOLE
     Dosage: FOR MULTIPLE AND VARIOUS YEARS
     Route: 065
  8. PREVACID 24 HR [Suspect]
     Active Substance: LANSOPRAZOLE
     Route: 065
     Dates: start: 20090518, end: 20171231
  9. AMOXICILLIN. [Concomitant]
     Active Substance: AMOXICILLIN
  10. TOPAMAX [Concomitant]
     Active Substance: TOPIRAMATE
  11. MUPIROCIN. [Concomitant]
     Active Substance: MUPIROCIN
  12. PREDNISONE. [Concomitant]
     Active Substance: PREDNISONE
  13. HYDROCORTISONE. [Concomitant]
     Active Substance: HYDROCORTISONE
  14. NORTRIPTYLINE [Concomitant]
     Active Substance: NORTRIPTYLINE
  15. NEXIUM 24HR [Suspect]
     Active Substance: ESOMEPRAZOLE MAGNESIUM
     Dosage: FOR MULTIPLE AND VARIOUS YEARS
     Route: 048
  16. NEXIUM 24HR [Suspect]
     Active Substance: ESOMEPRAZOLE MAGNESIUM
     Route: 048
     Dates: start: 20140328, end: 20171231
  17. PROTONIX [Suspect]
     Active Substance: PANTOPRAZOLE SODIUM
     Route: 065
     Dates: start: 20090101, end: 20171231
  18. PROTONIX [Suspect]
     Active Substance: PANTOPRAZOLE SODIUM
     Dosage: PANTOPRAZOLE SODIUM
     Route: 065
     Dates: start: 20140512
  19. PROTONIX [Suspect]
     Active Substance: PANTOPRAZOLE SODIUM
     Route: 065
     Dates: start: 20090101, end: 20171231
  20. RISPERIDONE. [Concomitant]
     Active Substance: RISPERIDONE
  21. LIDODERM [Concomitant]
     Active Substance: LIDOCAINE
  22. DIAZEPAM. [Concomitant]
     Active Substance: DIAZEPAM
  23. LEVETIRACETAM. [Concomitant]
     Active Substance: LEVETIRACETAM
  24. PRILOSEC OTC [Suspect]
     Active Substance: OMEPRAZOLE MAGNESIUM
     Route: 048
     Dates: start: 20090101, end: 20171231
  25. CELEBREX [Concomitant]
     Active Substance: CELECOXIB
  26. GABAPENTIN. [Concomitant]
     Active Substance: GABAPENTIN
  27. ALLOPURINOL. [Concomitant]
     Active Substance: ALLOPURINOL
  28. CRESTOR [Concomitant]
     Active Substance: ROSUVASTATIN CALCIUM
  29. ELIQUIS [Concomitant]
     Active Substance: APIXABAN
  30. MIRTAZAPINE. [Concomitant]
     Active Substance: MIRTAZAPINE
  31. NEXIUM [Suspect]
     Active Substance: ESOMEPRAZOLE MAGNESIUM
     Route: 048
     Dates: start: 20070702
  32. HYDROCHLOROTHIAZIDE. [Concomitant]
     Active Substance: HYDROCHLOROTHIAZIDE
  33. CYCLOBENZAPRINE HYDROCHLORIDE. [Concomitant]
     Active Substance: CYCLOBENZAPRINE HYDROCHLORIDE
  34. BYETTA [Concomitant]
     Active Substance: EXENATIDE
  35. DESONIDE. [Concomitant]
     Active Substance: DESONIDE
  36. NEXIUM [Suspect]
     Active Substance: ESOMEPRAZOLE MAGNESIUM
     Route: 048
     Dates: start: 20090101, end: 20171231
  37. ENALAPRIL MALEATE. [Concomitant]
     Active Substance: ENALAPRIL MALEATE
  38. GLIPIZIDE. [Concomitant]
     Active Substance: GLIPIZIDE
  39. PLAVIX [Concomitant]
     Active Substance: CLOPIDOGREL BISULFATE
  40. VIGAMOX [Concomitant]
     Active Substance: MOXIFLOXACIN HYDROCHLORIDE
  41. VAGIFEM [Concomitant]
     Active Substance: ESTRADIOL
  42. ACARBOSE. [Concomitant]
     Active Substance: ACARBOSE
  43. PREVACID [Suspect]
     Active Substance: LANSOPRAZOLE
     Route: 065
     Dates: start: 20090101, end: 20171231
  44. FUROSEMIDE. [Concomitant]
     Active Substance: FUROSEMIDE
  45. NEVANAC [Concomitant]
     Active Substance: NEPAFENAC
  46. AMLODIPINE [Concomitant]
     Active Substance: AMLODIPINE BESYLATE
  47. WARFARIN SODIUM. [Concomitant]
     Active Substance: WARFARIN SODIUM
  48. CARVEDILOL. [Concomitant]
     Active Substance: CARVEDILOL
  49. VALACYCLOVIR [Concomitant]
     Active Substance: VALACYCLOVIR HYDROCHLORIDE
  50. CONSTULOSE [Concomitant]
     Active Substance: LACTULOSE
  51. PRILOSEC [Suspect]
     Active Substance: OMEPRAZOLE MAGNESIUM
     Route: 048
     Dates: start: 20090101, end: 20171231
  52. CLONAZEPAM. [Concomitant]
     Active Substance: CLONAZEPAM
  53. TRAMADOL HYDROCHLORIDE. [Concomitant]
     Active Substance: TRAMADOL HYDROCHLORIDE
  54. LOVASTATIN. [Concomitant]
     Active Substance: LOVASTATIN
  55. SIMVASTATIN. [Concomitant]
     Active Substance: SIMVASTATIN

REACTIONS (5)
  - Renal injury [Unknown]
  - Acute kidney injury [Unknown]
  - Chronic kidney disease [Unknown]
  - Renal failure [Unknown]
  - Rebound acid hypersecretion [Unknown]
